FAERS Safety Report 6490149-4 (Version None)
Quarter: 2009Q4

REPORT INFORMATION
  Report Type: 
  Country: None (occurrence: None)
  Receive Date: 20091211
  Receipt Date: 20090716
  Transmission Date: 20100525
  Serious: No
  Sender: FDA-Public Use
  Company Number: A0797342A

PATIENT
  Sex: Female

DRUGS (2)
  1. FLONASE [Suspect]
     Dosage: 2SPR PER DAY
     Route: 045
     Dates: start: 20090714
  2. FLONASE [Suspect]
     Route: 045

REACTIONS (7)
  - EUSTACHIAN TUBE DYSFUNCTION [None]
  - OROPHARYNGEAL PAIN [None]
  - POSTNASAL DRIP [None]
  - PRURITUS [None]
  - RHINORRHOEA [None]
  - SENSATION OF FOREIGN BODY [None]
  - SINUS DISORDER [None]
